FAERS Safety Report 10328936 (Version 1)
Quarter: 2014Q3

REPORT INFORMATION
  Report Type: Spontaneous
  Country: US (occurrence: None)
  Receive Date: 20140717
  Receipt Date: 20140717
  Transmission Date: 20150326
  Serious: Yes (Other)
  Sender: FDA-Public Use
  Company Number: HA14-266-AE

PATIENT
  Age: 73 Year
  Sex: Male
  Weight: 105.24 kg

DRUGS (3)
  1. ASPIRIN. [Concomitant]
     Active Substance: ASPIRIN
  2. NAPROXEN SODIUM. [Suspect]
     Active Substance: NAPROXEN SODIUM
     Indication: BACK PAIN
     Dosage: 1 TABLET A DAY
     Route: 048
     Dates: start: 20140625, end: 20140629
  3. TUMS [Concomitant]
     Active Substance: CALCIUM CARBONATE

REACTIONS (5)
  - Weight increased [None]
  - Fluid retention [None]
  - Fatigue [None]
  - Peripheral swelling [None]
  - Dyspnoea [None]
